FAERS Safety Report 23295960 (Version 6)
Quarter: 2024Q1

REPORT INFORMATION
  Report Type: Spontaneous
  Country: US (occurrence: US)
  Receive Date: 20231214
  Receipt Date: 20240311
  Transmission Date: 20240410
  Serious: No
  Sender: FDA-Public Use
  Company Number: US-002147023-NVSC2023US265813

PATIENT
  Sex: Female

DRUGS (1)
  1. KESIMPTA [Suspect]
     Active Substance: OFATUMUMAB
     Indication: Product used for unknown indication
     Dosage: UNK, (20 MG/0.4 ML)
     Route: 065
     Dates: start: 20231112

REACTIONS (5)
  - Contusion [Unknown]
  - Product administration error [Unknown]
  - Product dose omission issue [Unknown]
  - Product administered at inappropriate site [Unknown]
  - Incorrect dose administered by product [Unknown]
